FAERS Safety Report 19476715 (Version 1)
Quarter: 2021Q2

REPORT INFORMATION
  Report Type: Report from Study
  Country: US (occurrence: US)
  Receive Date: 20210630
  Receipt Date: 20210630
  Transmission Date: 20210717
  Serious: Yes (Hospitalization, Other)
  Sender: FDA-Public Use
  Company Number: US-GILEAD-2021-0538321

PATIENT
  Sex: Female

DRUGS (10)
  1. TOBI PODHALER [Concomitant]
     Active Substance: TOBRAMYCIN
  2. URSODIOL. [Concomitant]
     Active Substance: URSODIOL
  3. LORATADINE. [Concomitant]
     Active Substance: LORATADINE
  4. AZTREONAM LYSINE [Suspect]
     Active Substance: AZTREONAM LYSINE
     Indication: CYSTIC FIBROSIS
     Dosage: 75 MG, TID, FOR 4 WEEKS EVERY OTHER MONTH
     Route: 055
     Dates: start: 20150903
  5. PULMOZYME [Concomitant]
     Active Substance: DORNASE ALFA
  6. TACROLIMUS. [Concomitant]
     Active Substance: TACROLIMUS
  7. CREON [Concomitant]
     Active Substance: PANCRELIPASE AMYLASE\PANCRELIPASE LIPASE\PANCRELIPASE PROTEASE
  8. TRIKAFTA [Concomitant]
     Active Substance: ELEXACAFTOR\IVACAFTOR\TEZACAFTOR
  9. SERTRALINE [Concomitant]
     Active Substance: SERTRALINE HYDROCHLORIDE
  10. TOBRAMYCIN. [Concomitant]
     Active Substance: TOBRAMYCIN

REACTIONS (1)
  - Lung transplant rejection [Unknown]
